FAERS Safety Report 5806995-3 (Version None)
Quarter: 2008Q3

REPORT INFORMATION
  Report Type: 
  Country: None (occurrence: None)
  Receive Date: 20080708
  Receipt Date: 20080625
  Transmission Date: 20090109
  Serious: Yes (Hospitalization)
  Sender: FDA-Public Use
  Company Number: 2008AL007868

PATIENT
  Age: 29 Year
  Sex: Male

DRUGS (3)
  1. IBUPROFEN [Suspect]
     Indication: ARTHRALGIA
     Dosage: 600 MG; TID; PO
     Route: 048
     Dates: start: 20080402
  2. ACETAMINOPHEN AND CODEINE PHOSPHATE [Suspect]
     Indication: ARTHRALGIA
     Dosage: 510 MG; QID; PO
     Route: 048
     Dates: start: 20080402
  3. FAT BURNING CAPSULES [Concomitant]

REACTIONS (3)
  - ABDOMINAL PAIN [None]
  - JAUNDICE [None]
  - PRURITUS [None]
